FAERS Safety Report 23693413 (Version 2)
Quarter: 2024Q3

REPORT INFORMATION
  Report Type: Report from Study
  Country: US (occurrence: US)
  Receive Date: 20240401
  Receipt Date: 20240925
  Transmission Date: 20241017
  Serious: Yes (Other)
  Sender: GLAXOSMITHKLINE
  Company Number: US-GLAXOSMITHKLINE-US2020AMR053192

PATIENT

DRUGS (23)
  1. NIRAPARIB [Suspect]
     Active Substance: NIRAPARIB
     Indication: Ovarian cancer
     Dosage: 200 MG, QD
     Dates: start: 202001
  2. NIRAPARIB [Suspect]
     Active Substance: NIRAPARIB
     Dosage: 200 MG, QD
     Dates: start: 20210220
  3. NIRAPARIB [Suspect]
     Active Substance: NIRAPARIB
     Dosage: 200 MG, QD
     Dates: start: 20200226, end: 20200323
  4. NIRAPARIB [Suspect]
     Active Substance: NIRAPARIB
     Dosage: 1 DF, QD (AT NIGHT)
  5. NIRAPARIB [Suspect]
     Active Substance: NIRAPARIB
     Dosage: 100 MG, QD
     Dates: start: 20200226
  6. NIRAPARIB [Suspect]
     Active Substance: NIRAPARIB
     Dosage: 100 MG, QD
  7. NIRAPARIB [Suspect]
     Active Substance: NIRAPARIB
     Dosage: 100 MG, QD
  8. NIRAPARIB [Suspect]
     Active Substance: NIRAPARIB
     Dosage: 100 MG, QD
  9. NIRAPARIB [Suspect]
     Active Substance: NIRAPARIB
     Dosage: UNK (100MG ALTERNATING WITH 200MG QOD)
  10. NIRAPARIB [Suspect]
     Active Substance: NIRAPARIB
     Dosage: UNK (100MG ALTERNATING WITH 200MG QOD)
  11. NIRAPARIB [Suspect]
     Active Substance: NIRAPARIB
     Dosage: UNK (100MG ALTERNATING WITH 200MG QOD)
  12. NIRAPARIB [Suspect]
     Active Substance: NIRAPARIB
     Dosage: UNK (100MG ALTERNATING WITH 200MG DAILY)
  13. NIRAPARIB [Suspect]
     Active Substance: NIRAPARIB
     Dosage: UNK (100MG ALTERNATING WITH 200MG ONCE DAILY EVERY OTHER DAY)
     Route: 048
  14. NIRAPARIB [Suspect]
     Active Substance: NIRAPARIB
     Dosage: UNK (100MG ALTERNATING WITH 200MG ONCE DAILY EVERY OTHER DAY)
  15. NIRAPARIB [Suspect]
     Active Substance: NIRAPARIB
     Dosage: UNK (ALTERNATES 100 MG ONE DAY THEN 200 MG THE NEXT DAY)
     Route: 048
     Dates: end: 20221006
  16. NIRAPARIB [Suspect]
     Active Substance: NIRAPARIB
     Dosage: UNK (100 MG TAKE ALTERNATING DOSE 100 MG ONE DAY THEN 200 MG NEXT DAY)
     Route: 048
     Dates: start: 202210
  17. NIRAPARIB [Suspect]
     Active Substance: NIRAPARIB
     Dosage: UNK (ALTERNATING DOSES OF 200 MG ONE DAY THEN 100 MG NEXT DAY)
     Route: 048
  18. NIRAPARIB [Suspect]
     Active Substance: NIRAPARIB
     Dosage: UNK  (100 MG ALTERNATING DOSES OF 100 MG ONE DAY THEN 200 MG NEXT DAY)
     Route: 048
  19. NIRAPARIB [Suspect]
     Active Substance: NIRAPARIB
     Dosage: UNK  (ALTERNATING 100 MG ONE DAY THEN 200 MG NEXT DAY)
     Route: 048
  20. NIRAPARIB [Suspect]
     Active Substance: NIRAPARIB
     Indication: Ovarian cancer
     Dosage: 100 MG, QD
     Route: 048
  21. NIRAPARIB [Suspect]
     Active Substance: NIRAPARIB
     Dosage: 100MG-1 TAB EVERY OTHER NIGHT ALTERNATING 1-200 MG ON THE OPPOSITE DAYS
     Route: 048
  22. NIRAPARIB [Suspect]
     Active Substance: NIRAPARIB
     Dosage: 100 MG, QD
     Dates: end: 202403
  23. LYNPARZA [Concomitant]
     Active Substance: OLAPARIB
     Indication: Product used for unknown indication
     Dosage: UNK

REACTIONS (28)
  - Ovarian cancer recurrent [Unknown]
  - Platelet count decreased [Recovered/Resolved]
  - Increased tendency to bruise [Unknown]
  - Epistaxis [Recovered/Resolved]
  - Blood pressure increased [Not Recovered/Not Resolved]
  - Nausea [Recovering/Resolving]
  - Weight decreased [Recovering/Resolving]
  - Dyspnoea [Not Recovered/Not Resolved]
  - Red blood cell count decreased [Recovered/Resolved]
  - Insomnia [Recovering/Resolving]
  - Constipation [Unknown]
  - Vomiting [Recovered/Resolved]
  - Joint swelling [Unknown]
  - Hypoaesthesia [Unknown]
  - Peripheral swelling [Unknown]
  - Arthralgia [Not Recovered/Not Resolved]
  - Joint stiffness [Not Recovered/Not Resolved]
  - Depression [Not Recovered/Not Resolved]
  - Hypertension [Not Recovered/Not Resolved]
  - Surgery [Not Recovered/Not Resolved]
  - Fatigue [Not Recovered/Not Resolved]
  - Blood iron decreased [Not Recovered/Not Resolved]
  - Vitamin B12 decreased [Unknown]
  - Dyspnoea exertional [Not Recovered/Not Resolved]
  - Product use issue [Unknown]
  - Inappropriate schedule of product administration [Unknown]
  - Off label use [Unknown]
  - Drug ineffective [Unknown]

NARRATIVE: CASE EVENT DATE: 20221010
